FAERS Safety Report 6220971-0 (Version None)
Quarter: 2009Q2

REPORT INFORMATION
  Report Type: 
  Country: None (occurrence: None)
  Receive Date: 20090605
  Receipt Date: 20090527
  Transmission Date: 20091009
  Serious: Yes (Death, Hospitalization)
  Sender: FDA-Public Use
  Company Number: DE-WYE-H09536109

PATIENT
  Age: 78 Year
  Sex: Male

DRUGS (13)
  1. PANTOPRAZOLE SODIUM [Suspect]
     Indication: PROPHYLAXIS AGAINST GASTROINTESTINAL ULCER
     Dosage: 40 MG 1X PER 1 DAY ORAL
     Route: 048
     Dates: start: 20080712, end: 20080726
  2. AVELOX [Suspect]
     Indication: PNEUMONIA
     Dosage: 400 MG 1X PER 1 DAY ORAL
     Route: 048
     Dates: start: 20080701, end: 20080710
  3. CEFTRIAXONE [Suspect]
     Indication: PNEUMONIA
     Dosage: INTRAVENOUS
     Route: 042
     Dates: start: 20080718, end: 20080722
  4. CIPROFLOXACIN HCL [Suspect]
     Indication: EPIDIDYMITIS
     Dosage: 250 MG,
     Dates: start: 20080612, end: 20080710
  5. ASPIRIN [Concomitant]
  6. DIGITOXIN INJ [Concomitant]
  7. ENALAPRIL MALEATE [Concomitant]
  8. FUROSEMIDE [Concomitant]
  9. GLEEVEC [Concomitant]
  10. DIPYRONE TAB [Concomitant]
  11. NOVONORM (REPAGLINIDE) [Concomitant]
  12. SYMBICORT [Concomitant]
  13. TORSEMIDE [Concomitant]

REACTIONS (5)
  - DEHYDRATION [None]
  - PROTEIN-LOSING GASTROENTEROPATHY [None]
  - PSEUDOMEMBRANOUS COLITIS [None]
  - RENAL FAILURE ACUTE [None]
  - WEIGHT DECREASED [None]
